FAERS Safety Report 4766057-3 (Version None)
Quarter: 2005Q3

REPORT INFORMATION
  Report Type: 
  Country: None (occurrence: None)
  Receive Date: 20050912
  Receipt Date: 20050823
  Transmission Date: 20060218
  Serious: Yes (Other)
  Sender: FDA-Public Use
  Company Number: PHEH2005US09407

PATIENT
  Age: 63 Year
  Sex: Male

DRUGS (4)
  1. ZOMETA [Suspect]
     Indication: MULTIPLE MYELOMA
     Dosage: 4MG Q4WK
     Route: 042
     Dates: start: 20050101, end: 20050601
  2. DECADRON                                /CAN/ [Concomitant]
     Indication: MULTIPLE MYELOMA
     Dosage: 40MG X4DAYS
  3. THALIDOMIDE [Concomitant]
     Indication: MULTIPLE MYELOMA
     Dosage: 50MG QD X4DAYS
  4. VELCADE [Concomitant]
     Indication: MULTIPLE MYELOMA
     Dosage: 1.3MG/M2 D1,4,8,11

REACTIONS (3)
  - ASEPTIC NECROSIS BONE [None]
  - BONE DISORDER [None]
  - OSTEONECROSIS [None]
